FAERS Safety Report 22266078 (Version 2)
Quarter: 2023Q2

REPORT INFORMATION
  Report Type: Spontaneous
  Country: US (occurrence: US)
  Receive Date: 20230428
  Receipt Date: 20230504
  Transmission Date: 20230721
  Serious: Yes (Hospitalization)
  Sender: FDA-Public Use
  Company Number: US-MYOVANT SCIENCES GMBH-2023MYSCI0200264

PATIENT
  Sex: Male
  Weight: 85.72 kg

DRUGS (9)
  1. ORGOVYX [Suspect]
     Active Substance: RELUGOLIX
     Indication: Prostate cancer
     Dosage: 360 MILLIGRAM, ONE TIME DOSE
     Route: 048
     Dates: start: 20230102, end: 20230102
  2. ORGOVYX [Suspect]
     Active Substance: RELUGOLIX
     Dosage: 120 MILLIGRAM, QD
     Route: 048
     Dates: start: 20230103, end: 20230302
  3. RANOLAZINE [Concomitant]
     Active Substance: RANOLAZINE
     Indication: Hypertension
     Dosage: 500 MILLIGRAM, BID
     Route: 065
     Dates: start: 202208
  4. ATORVASTATIN [Concomitant]
     Active Substance: ATORVASTATIN
     Indication: Hypertension
     Dosage: 40 MILLIGRAM, QD
     Route: 065
     Dates: start: 202208
  5. LISINOPRIL [Concomitant]
     Active Substance: LISINOPRIL
     Indication: Hypertension
     Dosage: 40 MILLIGRAM, QD
     Route: 065
     Dates: start: 2020
  6. XARELTO [Concomitant]
     Active Substance: RIVAROXABAN
     Indication: Anticoagulant therapy
     Dosage: 20 MILLIGRAM, QD
     Route: 065
     Dates: start: 2020
  7. XARELTO [Concomitant]
     Active Substance: RIVAROXABAN
     Dosage: 10 MILLIGRAM
     Route: 048
  8. TYLENOL [Concomitant]
     Active Substance: ACETAMINOPHEN
     Indication: Pain
     Dosage: 500 MILLIGRAM, PRN AT BEDTIME
     Route: 065
  9. APALUTAMIDE [Concomitant]
     Active Substance: APALUTAMIDE
     Indication: Neoplasm malignant
     Dosage: 4 TAB
     Route: 065
     Dates: start: 20230202

REACTIONS (4)
  - Tachycardia [Unknown]
  - Cardiac disorder [Unknown]
  - Therapy interrupted [Unknown]
  - Incorrect dose administered [Unknown]
